FAERS Safety Report 7645030-1 (Version None)
Quarter: 2011Q3

REPORT INFORMATION
  Report Type: 
  Country: None (occurrence: None)
  Receive Date: 20110729
  Receipt Date: 20110725
  Transmission Date: 20111222
  Serious: Yes (Hospitalization)
  Sender: FDA-Public Use
  Company Number: IT-GLAXOSMITHKLINE-B0733002A

PATIENT
  Sex: Male

DRUGS (13)
  1. CEFTAZIDIME [Suspect]
     Indication: PNEUMONIA
     Dosage: 2G PER DAY
     Route: 042
     Dates: start: 20110507, end: 20110523
  2. ALDACTONE [Suspect]
     Indication: HYPERTENSION
     Route: 048
     Dates: start: 20100624, end: 20110622
  3. FERROGRAD C [Concomitant]
  4. LASIX [Concomitant]
  5. ALLOPURINOL [Concomitant]
  6. ASPIRIN [Concomitant]
  7. TAMSULOSIN HYDROCHLORIDE [Concomitant]
  8. TARGOCID [Suspect]
     Indication: PNEUMONIA
     Route: 042
     Dates: start: 20110507, end: 20110523
  9. CHOLECALCIFEROL [Concomitant]
  10. NITROGLYN 2% OINTMENT [Concomitant]
     Route: 062
  11. NEXIUM [Concomitant]
  12. FOLINA [Concomitant]
  13. LEVOTHYROXINE SODIUM [Concomitant]
     Indication: HYPOTHYROIDISM

REACTIONS (7)
  - BLOOD SODIUM DECREASED [None]
  - CREATININE RENAL CLEARANCE DECREASED [None]
  - RENAL FAILURE [None]
  - BLOOD CREATININE INCREASED [None]
  - BLOOD UREA INCREASED [None]
  - BLOOD POTASSIUM INCREASED [None]
  - HYPERKALAEMIA [None]
